FAERS Safety Report 6643190-2 (Version None)
Quarter: 2010Q1

REPORT INFORMATION
  Report Type: 
  Country: None (occurrence: None)
  Receive Date: 20100319
  Receipt Date: 20100312
  Transmission Date: 20100710
  Serious: Yes (Other)
  Sender: FDA-Public Use
  Company Number: PHHY2010JP13092

PATIENT
  Age: 71 Year
  Sex: Female

DRUGS (2)
  1. VOLTAREN [Suspect]
     Indication: RHEUMATOID ARTHRITIS
     Dosage: UNK
     Route: 048
  2. MISOPROSTOL [Concomitant]
     Dosage: UNK
     Route: 048

REACTIONS (3)
  - PERITONITIS [None]
  - SMALL INTESTINAL PERFORATION [None]
  - SMALL INTESTINAL RESECTION [None]
